FAERS Safety Report 8465080-5 (Version None)
Quarter: 2012Q2

REPORT INFORMATION
  Report Type: 
  Country: None (occurrence: None)
  Receive Date: 20120618
  Receipt Date: 20120602
  Transmission Date: 20120825
  Serious: Yes (Hospitalization, Disabling)
  Sender: FDA-Public Use
  Company Number: 2012AP001703

PATIENT
  Age: 59 Year
  Sex: Male

DRUGS (2)
  1. HYDROCHLOROTHIAZIDE TABLETS [Suspect]
     Indication: HYPERTENSION
  2. VIAGRA [Suspect]
     Indication: PRODUCT USED FOR UNKNOWN INDICATION
     Dosage: 50 MG

REACTIONS (5)
  - BLOOD PRESSURE SYSTOLIC DECREASED [None]
  - SPINAL CORD INFARCTION [None]
  - VISION BLURRED [None]
  - PARAPLEGIA [None]
  - DIZZINESS [None]
